FAERS Safety Report 4776537-2 (Version None)
Quarter: 2005Q3

REPORT INFORMATION
  Report Type: 
  Country: None (occurrence: None)
  Receive Date: 20050915
  Receipt Date: 20050908
  Transmission Date: 20060218
  Serious: Yes (Other)
  Sender: FDA-Public Use
  Company Number: 2005125722

PATIENT
  Sex: Male

DRUGS (1)
  1. SORTIS (ATORVASTATIN) [Suspect]
     Indication: ILL-DEFINED DISORDER
     Dosage: 20 MG, 40 MG, OR 80 MG (ORAL)
     Route: 048

REACTIONS (5)
  - FALL [None]
  - GAIT DISTURBANCE [None]
  - MUSCULAR WEAKNESS [None]
  - UNEVALUABLE EVENT [None]
  - VASCULAR STENOSIS [None]
